FAERS Safety Report 5153322-3 (Version None)
Quarter: 2006Q4

REPORT INFORMATION
  Report Type: 
  Country: None (occurrence: None)
  Receive Date: 20061117
  Receipt Date: 20061107
  Transmission Date: 20070319
  Serious: Yes (Other)
  Sender: FDA-Public Use
  Company Number: 2006PK02321

PATIENT
  Age: 66 Year
  Sex: Male
  Weight: 94 kg

DRUGS (4)
  1. ATACAND [Suspect]
     Indication: VENTRICULAR DYSFUNCTION
     Route: 048
     Dates: start: 20060214
  2. TORSEMIDE [Concomitant]
  3. CARVEDIOL [Concomitant]
  4. ALDACTONE [Concomitant]

REACTIONS (1)
  - SYNCOPE [None]
